FAERS Safety Report 5704435-6 (Version None)
Quarter: 2008Q2

REPORT INFORMATION
  Report Type: 
  Country: None (occurrence: None)
  Receive Date: 20080411
  Receipt Date: 20080411
  Transmission Date: 20081010
  Serious: Yes (Hospitalization)
  Sender: FDA-Public Use
  Company Number: None

PATIENT
  Age: 65 Year
  Sex: Male
  Weight: 110 kg

DRUGS (12)
  1. BEVACIZUMAB (GENENTECH) [Suspect]
     Indication: ANAPLASTIC ASTROCYTOMA
     Dosage: 10MG/KG QOW
     Dates: start: 20080208
  2. TARCEVA [Suspect]
     Indication: ANAPLASTIC ASTROCYTOMA
     Dosage: 200MG PO QD
     Route: 048
     Dates: start: 20080208
  3. NEXIUM [Concomitant]
  4. TOPROL-XL [Concomitant]
  5. DIOVAN [Concomitant]
  6. LEXAPRO [Concomitant]
  7. PROSCAR [Concomitant]
  8. ORETIC [Concomitant]
  9. KEPPRA [Concomitant]
  10. K-DUR [Concomitant]
  11. TRAVATAN [Concomitant]
  12. ZOCOR [Concomitant]

REACTIONS (7)
  - CONVULSION [None]
  - DELUSION [None]
  - HALLUCINATION, AUDITORY [None]
  - HALLUCINATION, OLFACTORY [None]
  - MANIA [None]
  - MENTAL STATUS CHANGES [None]
  - PSYCHOTIC DISORDER [None]
